FAERS Safety Report 9639698 (Version 3)
Quarter: 2013Q4

REPORT INFORMATION
  Report Type: Spontaneous
  Country: AU (occurrence: AU)
  Receive Date: 20131023
  Receipt Date: 20131216
  Transmission Date: 20140711
  Serious: Yes (Other)
  Sender: FDA-Public Use
  Company Number: AU-AMGEN-AUSSP2013072869

PATIENT
  Sex: Male
  Weight: 115 kg

DRUGS (2)
  1. NPLATE [Suspect]
     Indication: IMMUNE THROMBOCYTOPENIC PURPURA
     Dosage: 1 MUG/KG, UNK
     Route: 065
     Dates: start: 20121102
  2. MABTHERA [Concomitant]
     Dosage: 100 MG, UNK

REACTIONS (4)
  - Drug effect decreased [Unknown]
  - Platelet count decreased [Recovering/Resolving]
  - Hypertension [Unknown]
  - Blood glucose increased [Unknown]
